FAERS Safety Report 13004857 (Version 4)
Quarter: 2017Q3

REPORT INFORMATION
  Report Type: Report from Study
  Country: JP (occurrence: JP)
  Receive Date: 20161207
  Receipt Date: 20170719
  Transmission Date: 20171127
  Serious: Yes (Death, Hospitalization, Other)
  Sender: FDA-Public Use
  Company Number: JP-BRISTOL-MYERS SQUIBB COMPANY-BMS-2016-097975

PATIENT
  Age: 75 Year
  Sex: Male

DRUGS (10)
  1. IPILIMUMAB [Suspect]
     Active Substance: IPILIMUMAB
     Indication: MALIGNANT MELANOMA
     Dosage: 3 MG/KG, Q3WK
     Route: 041
     Dates: start: 20160923
  2. E KEPPRA [Concomitant]
     Active Substance: LEVETIRACETAM
     Indication: SEIZURE
     Dosage: 1000 MG, QD
     Route: 065
     Dates: start: 20160802
  3. KETAS [Concomitant]
     Active Substance: IBUDILAST
     Indication: ADVERSE EVENT
     Dosage: 30 MG, QD
     Route: 065
     Dates: start: 20151015
  4. RIVOTRIL [Concomitant]
     Active Substance: CLONAZEPAM
     Indication: SEIZURE
     Dosage: 1 MG, QD
     Route: 065
     Dates: start: 20161125
  5. ETIZOLAM [Concomitant]
     Active Substance: ETIZOLAM
     Indication: ADVERSE EVENT
     Dosage: 0.5 MG, QD
     Route: 065
     Dates: start: 20151015
  6. AMANTADINE HYDROCHLORIDE. [Concomitant]
     Active Substance: AMANTADINE HYDROCHLORIDE
     Indication: ADVERSE EVENT
     Dosage: 150 MG, QD
     Route: 065
     Dates: start: 20151015
  7. PRIMPERAN [Concomitant]
     Active Substance: METOCLOPRAMIDE HYDROCHLORIDE
     Indication: PARALYSIS
     Dosage: 15 MG, QD
     Route: 065
     Dates: start: 20160803
  8. SHAKUYAKUKANZOTO [Concomitant]
     Active Substance: HERBALS
     Indication: PARALYSIS
     Dosage: 7.5 G, QD
     Route: 065
     Dates: start: 20161031
  9. IPILIMUMAB [Suspect]
     Active Substance: IPILIMUMAB
     Indication: PRODUCT USED FOR UNKNOWN INDICATION
     Dosage: 3 MG/KG, Q3WK
     Route: 041
     Dates: start: 20161014, end: 20161125
  10. MIYA-BM [Concomitant]
     Active Substance: CLOSTRIDIUM BUTYRICUM SPORES STRAIN M-55
     Indication: PROPHYLAXIS
     Dosage: 3 TAB, QD
     Route: 065
     Dates: start: 20160923

REACTIONS (3)
  - Malignant neoplasm progression [Fatal]
  - Decreased appetite [Recovering/Resolving]
  - Liver disorder [Recovering/Resolving]

NARRATIVE: CASE EVENT DATE: 20161022
